FAERS Safety Report 15636770 (Version 1)
Quarter: 2018Q4

REPORT INFORMATION
  Report Type: Spontaneous
  Country: US (occurrence: US)
  Receive Date: 20181120
  Receipt Date: 20181120
  Transmission Date: 20190205
  Serious: Yes (Other)
  Sender: FDA-Public Use
  Company Number: US-GLAXOSMITHKLINE-US2018207332

PATIENT
  Sex: Male

DRUGS (1)
  1. TRANSDERM SCOP [Suspect]
     Active Substance: SCOPOLAMINE
     Indication: NAUSEA
     Dosage: UNK
     Dates: start: 20180925, end: 20181011

REACTIONS (8)
  - Dizziness [Unknown]
  - Hospitalisation [Unknown]
  - Feeling abnormal [Unknown]
  - Food poisoning [Unknown]
  - Vertigo [Unknown]
  - Vomiting [Unknown]
  - Adverse drug reaction [Unknown]
  - Rectal haemorrhage [Unknown]

NARRATIVE: CASE EVENT DATE: 20180925
